FAERS Safety Report 18611112 (Version 1)
Quarter: 2020Q4

REPORT INFORMATION
  Report Type: Spontaneous
  Country: US (occurrence: US)
  Receive Date: 20201213
  Receipt Date: 20201213
  Transmission Date: 20210114
  Serious: No
  Sender: FDA-Public Use
  Company Number: None

PATIENT
  Age: 7 Year
  Sex: Male

DRUGS (2)
  1. SINGULAIR [Suspect]
     Active Substance: MONTELUKAST SODIUM
     Indication: ASTHMA
     Route: 048
     Dates: start: 20190202, end: 20190401
  2. SINGULAIR [Suspect]
     Active Substance: MONTELUKAST SODIUM
     Indication: COUGH
     Route: 048
     Dates: start: 20190202, end: 20190401

REACTIONS (7)
  - Mood swings [None]
  - Sleep terror [None]
  - Self-injurious ideation [None]
  - Patient elopement [None]
  - Somnambulism [None]
  - Anger [None]
  - Autophobia [None]
